FAERS Safety Report 8283218 (Version 4)
Quarter: 2016Q2

REPORT INFORMATION
  Report Type: Spontaneous
  Country: US (occurrence: US)
  Receive Date: 20111209
  Receipt Date: 20160510
  Transmission Date: 20160815
  Serious: Yes (Hospitalization)
  Sender: FDA-Public Use
  Company Number: US-ASTRAZENECA-2011SE73590

PATIENT
  Age: 624 Month
  Sex: Male
  Weight: 81.6 kg

DRUGS (3)
  1. SYMBICORT [Suspect]
     Active Substance: BUDESONIDE\FORMOTEROL FUMARATE DIHYDRATE
     Indication: CHRONIC OBSTRUCTIVE PULMONARY DISEASE
     Dosage: 160/4.5UG, 2 PUFFS TWICE PER DAY
     Route: 055
     Dates: start: 2008
  2. CRESTOR [Suspect]
     Active Substance: ROSUVASTATIN CALCIUM
     Route: 048
     Dates: start: 2006
  3. SYMBICORT [Suspect]
     Active Substance: BUDESONIDE\FORMOTEROL FUMARATE DIHYDRATE
     Indication: LUNG NEOPLASM MALIGNANT
     Dosage: 160/4.5UG, 2 PUFFS TWICE PER DAY
     Route: 055
     Dates: start: 2008

REACTIONS (8)
  - Pneumothorax [Recovered/Resolved with Sequelae]
  - Rheumatoid arthritis [Not Recovered/Not Resolved]
  - Pulmonary thrombosis [Recovered/Resolved with Sequelae]
  - Drug dose omission [Unknown]
  - Disease progression [Not Recovered/Not Resolved]
  - Rib fracture [Unknown]
  - Lung perforation [Unknown]
  - Chronic obstructive pulmonary disease [Unknown]

NARRATIVE: CASE EVENT DATE: 200903
